FAERS Safety Report 24450943 (Version 1)
Quarter: 2024Q4

REPORT INFORMATION
  Report Type: Report from Study
  Country: US (occurrence: US)
  Receive Date: 20241017
  Receipt Date: 20241017
  Transmission Date: 20250115
  Serious: Yes (Other)
  Sender: ABBVIE
  Company Number: US-ABBVIE-5649681

PATIENT
  Age: 63 Year
  Sex: Female

DRUGS (1)
  1. SKYRIZI [Suspect]
     Active Substance: RISANKIZUMAB-RZAA
     Indication: Crohn^s disease
     Route: 058
     Dates: start: 20230725

REACTIONS (8)
  - Hypersensitivity [Recovering/Resolving]
  - Fungal skin infection [Recovered/Resolved]
  - Appendix disorder [Recovering/Resolving]
  - Lymphadenopathy [Recovering/Resolving]
  - Rash [Recovering/Resolving]
  - Fungal skin infection [Recovering/Resolving]
  - Asthenia [Not Recovered/Not Resolved]
  - Feeling abnormal [Not Recovered/Not Resolved]

NARRATIVE: CASE EVENT DATE: 20240101
